FAERS Safety Report 19506583 (Version 1)
Quarter: 2021Q3

REPORT INFORMATION
  Report Type: Spontaneous
  Country: US (occurrence: US)
  Receive Date: 20210708
  Receipt Date: 20210708
  Transmission Date: 20211014
  Serious: Yes (Death)
  Sender: FDA-Public Use
  Company Number: None

PATIENT
  Age: 38 Year
  Sex: Male
  Weight: 137.7 kg

DRUGS (4)
  1. KRATOM [Suspect]
     Active Substance: HERBALS\MITRAGYNINE
     Indication: ANXIETY
  2. DOXEPIN [Concomitant]
     Active Substance: DOXEPIN
  3. CLONAZEPAM. [Concomitant]
     Active Substance: CLONAZEPAM
  4. VENLAFAXINE [Suspect]
     Active Substance: VENLAFAXINE HYDROCHLORIDE

REACTIONS (1)
  - Overdose [None]

NARRATIVE: CASE EVENT DATE: 20210601
